FAERS Safety Report 17422763 (Version 2)
Quarter: 2020Q1

REPORT INFORMATION
  Report Type: Spontaneous
  Country: BE (occurrence: BE)
  Receive Date: 20200215
  Receipt Date: 20200225
  Transmission Date: 20200409
  Serious: Yes (Hospitalization, Other)
  Sender: FDA-Public Use
  Company Number: BE-VISTAPHARM, INC.-VER202002-000302

PATIENT
  Age: 65 Year
  Sex: Female

DRUGS (2)
  1. METHADONE [Suspect]
     Active Substance: METHADONE HYDROCHLORIDE
     Dosage: 3 X 30 MG/DAY
     Route: 048
  2. METHADONE [Suspect]
     Active Substance: METHADONE HYDROCHLORIDE
     Indication: PAIN
     Dosage: 3 X 10 MG/DAY
     Route: 048

REACTIONS (3)
  - Leukoencephalopathy [Recovered/Resolved]
  - Accidental overdose [Unknown]
  - Toxicity to various agents [Recovered/Resolved]
